FAERS Safety Report 5977816-3 (Version None)
Quarter: 2008Q4

REPORT INFORMATION
  Report Type: 
  Country: None (occurrence: None)
  Receive Date: 20081203
  Receipt Date: 20081120
  Transmission Date: 20090506
  Serious: No
  Sender: FDA-Public Use
  Company Number: US-ELI_LILLY_AND_COMPANY-US200811005081

PATIENT
  Sex: Female

DRUGS (3)
  1. ALIMTA [Suspect]
     Indication: NON-SMALL CELL LUNG CANCER
     Dosage: 820 MG, OTHER
     Route: 042
     Dates: start: 20080723, end: 20081015
  2. VITAMIN B-12 [Concomitant]
     Indication: PREMEDICATION
  3. FOLIC ACID [Concomitant]
     Indication: PREMEDICATION

REACTIONS (1)
  - PLATELET COUNT INCREASED [None]
